FAERS Safety Report 6453833-4 (Version None)
Quarter: 2009Q4

REPORT INFORMATION
  Report Type: 
  Country: None (occurrence: None)
  Receive Date: 20091123
  Receipt Date: 20091123
  Transmission Date: 20100525
  Serious: Yes (Other)
  Sender: FDA-Public Use
  Company Number: None

PATIENT
  Age: 42 Year
  Sex: Female
  Weight: 81.6475 kg

DRUGS (2)
  1. TAMIFLU [Suspect]
     Indication: H1N1 INFLUENZA
     Dosage: 1 75 MG CAPSUL TWICE/DAY PO
     Route: 048
     Dates: start: 20091117, end: 20091118
  2. TAMIFLU [Suspect]
     Indication: INFLUENZA
     Dosage: 1 75 MG CAPSUL TWICE/DAY PO
     Route: 048
     Dates: start: 20091117, end: 20091118

REACTIONS (9)
  - ABDOMINAL PAIN UPPER [None]
  - AGITATION [None]
  - DIARRHOEA [None]
  - EUPHORIC MOOD [None]
  - FATIGUE [None]
  - INSOMNIA [None]
  - PALPITATIONS [None]
  - PRODUCT QUALITY ISSUE [None]
  - TREMOR [None]
